FAERS Safety Report 7346531-6 (Version None)
Quarter: 2011Q1

REPORT INFORMATION
  Report Type: 
  Country: None (occurrence: None)
  Receive Date: 20110311
  Receipt Date: 20110302
  Transmission Date: 20110831
  Serious: Yes (Death)
  Sender: FDA-Public Use
  Company Number: US-JNJFOC-20101205799

PATIENT
  Sex: Female
  Weight: 107.5 kg

DRUGS (5)
  1. AMITRIPTYLINE [Concomitant]
     Route: 065
  2. NORTRIPTYLINE [Concomitant]
     Route: 065
  3. CYCLOBENZAPRINE [Concomitant]
     Route: 065
  4. OXYCODONE [Concomitant]
     Route: 065
  5. FENTANYL [Suspect]
     Indication: PAIN
     Route: 062

REACTIONS (2)
  - DRUG ADMINISTERED AT INAPPROPRIATE SITE [None]
  - TOXICITY TO VARIOUS AGENTS [None]
